FAERS Safety Report 26126873 (Version 1)
Quarter: 2025Q4

REPORT INFORMATION
  Report Type: Spontaneous
  Country: US (occurrence: US)
  Receive Date: 20251205
  Receipt Date: 20251205
  Transmission Date: 20260118
  Serious: No
  Sender: EISAI
  Company Number: US-Eisai-EC-2025-200008

PATIENT
  Age: 48 Year
  Sex: Female

DRUGS (1)
  1. LENVATINIB [Suspect]
     Active Substance: LENVATINIB
     Indication: Thyroid cancer
     Route: 048

REACTIONS (1)
  - Cardiac discomfort [Unknown]
